FAERS Safety Report 18425293 (Version 1)
Quarter: 2020Q4

REPORT INFORMATION
  Report Type: Spontaneous
  Country: US (occurrence: US)
  Receive Date: 20201023
  Receipt Date: 20201023
  Transmission Date: 20210114
  Serious: No
  Sender: FDA-Public Use
  Company Number: None

PATIENT
  Age: 65 Year
  Sex: Male
  Weight: 87.3 kg

DRUGS (11)
  1. JANUVIA [Concomitant]
     Active Substance: SITAGLIPTIN PHOSPHATE
  2. INVOKANA [Concomitant]
     Active Substance: CANAGLIFLOZIN
  3. FAMOTIDINE. [Concomitant]
     Active Substance: FAMOTIDINE
  4. NEXIUM [Concomitant]
     Active Substance: ESOMEPRAZOLE MAGNESIUM
  5. VITORIA [Concomitant]
  6. GLIPIZIDE. [Concomitant]
     Active Substance: GLIPIZIDE
  7. METOPROLOL. [Concomitant]
     Active Substance: METOPROLOL
  8. CIALIS [Concomitant]
     Active Substance: TADALAFIL
  9. TRULICITY [Suspect]
     Active Substance: DULAGLUTIDE
     Indication: TYPE 2 DIABETES MELLITUS
     Dosage: ?          QUANTITY:1 INJECTION(S);OTHER FREQUENCY:WEEKLY;?
     Route: 030
     Dates: start: 20201014
  10. RANEXA [Concomitant]
     Active Substance: RANOLAZINE
  11. ALFUZOSIN [Concomitant]
     Active Substance: ALFUZOSIN

REACTIONS (7)
  - Vision blurred [None]
  - Urinary retention [None]
  - Abdominal pain upper [None]
  - Flatulence [None]
  - Swollen tongue [None]
  - Gastrooesophageal reflux disease [None]
  - Eructation [None]

NARRATIVE: CASE EVENT DATE: 20201015
